FAERS Safety Report 10248734 (Version 1)
Quarter: 2014Q2

REPORT INFORMATION
  Report Type: Spontaneous
  Country: FR (occurrence: None)
  Receive Date: 20140618
  Receipt Date: 20140618
  Transmission Date: 20141212
  Serious: Yes (Other)
  Sender: FDA-Public Use
  Company Number: 2014RN000024

PATIENT
  Age: 60 Year
  Sex: Female

DRUGS (1)
  1. ACYCLOVIR [Suspect]
     Indication: GENITAL HERPES
     Dates: start: 201402

REACTIONS (4)
  - Red blood cell count decreased [None]
  - Platelet count decreased [None]
  - Asthenia [None]
  - Neutrophil count decreased [None]
